FAERS Safety Report 16744503 (Version 3)
Quarter: 2019Q4

REPORT INFORMATION
  Report Type: Spontaneous
  Country: JP (occurrence: JP)
  Receive Date: 20190827
  Receipt Date: 20191022
  Transmission Date: 20200122
  Serious: Yes (Hospitalization, Other)
  Sender: FDA-Public Use
  Company Number: JP-009507513-1908JPN002010J

PATIENT
  Age: 57 Year
  Sex: Male
  Weight: 55 kg

DRUGS (3)
  1. MIRTAZAPINE. [Concomitant]
     Active Substance: MIRTAZAPINE
     Indication: PARKINSON^S DISEASE
     Dosage: UNK
     Route: 065
  2. MENESIT TABLETS - 100 [Suspect]
     Active Substance: CARBIDOPA\LEVODOPA
     Dosage: 50 MILLIGRAM, QD
     Route: 048
     Dates: start: 20190627
  3. MENESIT TABLETS - 100 [Suspect]
     Active Substance: CARBIDOPA\LEVODOPA
     Indication: PARKINSON^S DISEASE
     Dosage: 50 MILLIGRAM, BID
     Route: 048
     Dates: start: 20180822, end: 20180907

REACTIONS (2)
  - Depressive delusion [Recovered/Resolved]
  - Delirium [Recovered/Resolved]

NARRATIVE: CASE EVENT DATE: 20180827
